FAERS Safety Report 9023630 (Version 3)
Quarter: 2013Q1

REPORT INFORMATION
  Report Type: Spontaneous
  Country: US (occurrence: US)
  Receive Date: 20130121
  Receipt Date: 20130221
  Transmission Date: 20140127
  Serious: Yes (Death, Hospitalization)
  Sender: FDA-Public Use
  Company Number: US-BAXTER-2013BAX001887

PATIENT
  Sex: Male

DRUGS (1)
  1. DIANEAL LOW CALCIUM [Suspect]
     Indication: PERITONEAL DIALYSIS
     Route: 033
     Dates: end: 20130123

REACTIONS (5)
  - Pneumonia [Fatal]
  - Cardiac failure congestive [Fatal]
  - Cardiac disorder [Unknown]
  - Swelling [Unknown]
  - Hypertension [Unknown]
